FAERS Safety Report 10763684 (Version 1)
Quarter: 2015Q1

REPORT INFORMATION
  Report Type: Spontaneous
  Country: US (occurrence: US)
  Receive Date: 20150204
  Receipt Date: 20150204
  Transmission Date: 20150721
  Serious: No
  Sender: FDA-Public Use
  Company Number: US-GLAXOSMITHKLINE-US2014GSK049216

PATIENT
  Sex: Female

DRUGS (1)
  1. COREG CR [Suspect]
     Active Substance: CARVEDILOL PHOSPHATE
     Indication: BLOOD PRESSURE ABNORMAL
     Dosage: 20 MG, U
     Dates: start: 2004

REACTIONS (2)
  - Gait disturbance [Unknown]
  - Obesity [Unknown]
